FAERS Safety Report 16446732 (Version 10)
Quarter: 2019Q4

REPORT INFORMATION
  Report Type: Report from Study
  Country: US (occurrence: US)
  Receive Date: 20190618
  Receipt Date: 20191209
  Transmission Date: 20200122
  Serious: Yes (Other)
  Sender: FDA-Public Use
  Company Number: US-ACTELION-A-NJ2019-191830

PATIENT
  Sex: Female
  Weight: 83.9 kg

DRUGS (6)
  1. UPTRAVI [Suspect]
     Active Substance: SELEXIPAG
     Dosage: 400 MCG, BID
     Route: 048
     Dates: start: 201907, end: 201907
  2. UPTRAVI [Suspect]
     Active Substance: SELEXIPAG
     Dosage: 200 MCG, BID
     Route: 048
     Dates: start: 201907
  3. UPTRAVI [Suspect]
     Active Substance: SELEXIPAG
     Dosage: 200 MCG AM, 400 MCG PM
     Route: 048
  4. UPTRAVI [Suspect]
     Active Substance: SELEXIPAG
     Dosage: UNK
     Route: 048
  5. UPTRAVI [Suspect]
     Active Substance: SELEXIPAG
     Indication: PULMONARY ARTERIAL HYPERTENSION
     Dosage: 200 MCG, BID
     Route: 048
     Dates: end: 20190610
  6. TRACLEER [Suspect]
     Active Substance: BOSENTAN
     Indication: PULMONARY ARTERIAL HYPERTENSION
     Dosage: 125 MG, BID
     Route: 048

REACTIONS (22)
  - Headache [Unknown]
  - Nervousness [Unknown]
  - Drug ineffective [Unknown]
  - Diarrhoea [Unknown]
  - Eye disorder [Unknown]
  - Malaise [Unknown]
  - Pain in extremity [Unknown]
  - Pulmonary arterial pressure increased [Unknown]
  - Corrective lens user [Unknown]
  - Abdominal discomfort [Unknown]
  - Confusional state [Unknown]
  - Neuropathy peripheral [Unknown]
  - Myalgia [Not Recovered/Not Resolved]
  - Restlessness [Unknown]
  - Nasopharyngitis [Unknown]
  - Condition aggravated [Unknown]
  - Vomiting [Unknown]
  - Fatigue [Unknown]
  - Diabetic neuropathy [Unknown]
  - Arthralgia [Unknown]
  - Sensitivity to weather change [Unknown]
  - Drug intolerance [Unknown]
